FAERS Safety Report 5232909-3 (Version None)
Quarter: 2007Q1

REPORT INFORMATION
  Report Type: 
  Country: None (occurrence: None)
  Receive Date: 20070207
  Receipt Date: 20070126
  Transmission Date: 20070707
  Serious: Yes (Hospitalization)
  Sender: FDA-Public Use
  Company Number: FR-BAXTER-2007BH000829

PATIENT
  Age: 78 Year
  Sex: Female

DRUGS (4)
  1. EXTRANEAL [Suspect]
     Indication: RENAL FAILURE
     Route: 033
     Dates: start: 20050101, end: 20070130
  2. EXTRANEAL [Suspect]
     Indication: NEPHROPATHY
     Route: 033
     Dates: start: 20050101, end: 20070130
  3. DIANEAL [Concomitant]
     Indication: RENAL FAILURE
     Dates: start: 20050101, end: 20070130
  4. NUTRINEAL, UNSPECIFIED PRODUCT [Concomitant]
     Indication: RENAL FAILURE
     Dates: start: 20050101, end: 20070130

REACTIONS (3)
  - FOOD INTOLERANCE [None]
  - PERITONITIS [None]
  - VOMITING [None]
